FAERS Safety Report 17756738 (Version 1)
Quarter: 2020Q2

REPORT INFORMATION
  Report Type: Spontaneous
  Country: US (occurrence: US)
  Receive Date: 20200507
  Receipt Date: 20200507
  Transmission Date: 20200714
  Serious: Yes (Hospitalization, Other)
  Sender: FDA-Public Use
  Company Number: None

PATIENT
  Sex: Female
  Weight: 48.08 kg

DRUGS (12)
  1. GLUTATHIONE [Concomitant]
     Active Substance: GLUTATHIONE
  2. COLLAGEN [Concomitant]
     Active Substance: COLLAGEN
  3. PARAGARD T 380A [Suspect]
     Active Substance: COPPER
     Dates: start: 20111008, end: 20200502
  4. ZYRTEC [Concomitant]
     Active Substance: CETIRIZINE HYDROCHLORIDE
  5. VITAMIN B COMPLEX [Concomitant]
     Active Substance: CYANOCOBALAMIN\DEXPANTHENOL\NIACINAMIDE\PYRIDOXINE HYDROCHLORIDE\RIBOFLAVIN 5^-PHOSPHATE SODIUM\THIAMINE HYDROCHLORIDE\VITAMIN B COMPLEX
  6. FLONASE [Concomitant]
     Active Substance: FLUTICASONE PROPIONATE
  7. OMEGA 3-6-9 [Concomitant]
     Active Substance: FISH OIL
  8. FENUGREEK [Concomitant]
     Active Substance: FENUGREEK SEED
  9. MAGNESIUM [Concomitant]
     Active Substance: MAGNESIUM
  10. VIT D [Concomitant]
     Active Substance: VITAMIN D NOS
  11. MACA [Concomitant]
  12. NAC [ACETYLCYSTEINE] [Concomitant]
     Active Substance: ACETYLCYSTEINE

REACTIONS (32)
  - Diarrhoea [None]
  - Dizziness [None]
  - Mood altered [None]
  - Gingival recession [None]
  - Headache [None]
  - Asthenia [None]
  - Pain [None]
  - Anger [None]
  - Toxicity to various agents [None]
  - Metal poisoning [None]
  - Impaired healing [None]
  - Ovarian cyst [None]
  - Insomnia [None]
  - Hypersensitivity [None]
  - Eczema [None]
  - Anxiety [None]
  - Device breakage [None]
  - Acne cystic [None]
  - Orgasmic sensation decreased [None]
  - Abdominal distension [None]
  - Fatigue [None]
  - Dyspareunia [None]
  - Weight increased [None]
  - Palpitations [None]
  - Immunosuppression [None]
  - Ectopic pregnancy with contraceptive device [None]
  - Menorrhagia [None]
  - Near death experience [None]
  - Complication associated with device [None]
  - Alopecia [None]
  - Dysmenorrhoea [None]
  - Abdominal pain [None]
